FAERS Safety Report 4950123-3 (Version None)
Quarter: 2006Q1

REPORT INFORMATION
  Report Type: 
  Country: None (occurrence: None)
  Receive Date: 20060315
  Receipt Date: 20060302
  Transmission Date: 20060701
  Serious: Yes (Other)
  Sender: FDA-Public Use
  Company Number: 2006EU000610

PATIENT
  Age: 81 Year
  Sex: Female

DRUGS (12)
  1. VESICARE [Suspect]
     Dosage: 10 MG,  UID/QD, ORAL
     Route: 048
     Dates: start: 20050901, end: 20060201
  2. ALPRAZOLAM [Concomitant]
  3. AMLODIPINE [Concomitant]
  4. BISOPROLOL [Concomitant]
  5. DIFENE [Concomitant]
  6. ENSURE PLUS (VITAMINS NOS, FATTY ACIDS NOS, PROTEINS NOS, MINERALS NOS [Concomitant]
  7. FOSAMAX [Concomitant]
  8. NORMACOL [Concomitant]
  9. OLANZAPINE [Concomitant]
  10. ALENDRONATE SODIUM [Concomitant]
  11. OXCARBAZEPINE [Concomitant]
  12. CALCIUM PHOSPHATE W/COLECALCIFEROL [Concomitant]

REACTIONS (1)
  - CONFUSIONAL STATE [None]
